FAERS Safety Report 12469069 (Version 1)
Quarter: 2016Q2

REPORT INFORMATION
  Report Type: Report from Study
  Country: US (occurrence: US)
  Receive Date: 20160615
  Receipt Date: 20160615
  Transmission Date: 20160815
  Serious: Yes (Other)
  Sender: FDA-Public Use
  Company Number: US-MYLANLABS-2016M1024672

PATIENT

DRUGS (13)
  1. LASIX [Concomitant]
     Active Substance: FUROSEMIDE
     Dosage: UNK
  2. HALDOL [Concomitant]
     Active Substance: HALOPERIDOL
     Dosage: UNK
  3. METFORMIN [Concomitant]
     Active Substance: METFORMIN HYDROCHLORIDE
     Dosage: UNK
  4. ASA [Concomitant]
     Active Substance: ASPIRIN
     Dosage: UNK
  5. GLIPIZIDE. [Concomitant]
     Active Substance: GLIPIZIDE
     Dosage: UNK
  6. TOPAMAX [Concomitant]
     Active Substance: TOPIRAMATE
     Dosage: UNK
  7. ARICEPT [Concomitant]
     Active Substance: DONEPEZIL HYDROCHLORIDE
     Dosage: UNK
  8. DIGOXIN. [Concomitant]
     Active Substance: DIGOXIN
     Dosage: UNK
  9. GABAPENTIN. [Concomitant]
     Active Substance: GABAPENTIN
     Dosage: UNK
  10. COLACE [Concomitant]
     Active Substance: DOCUSATE SODIUM
     Dosage: UNK
  11. AMLODIPINE [Concomitant]
     Active Substance: AMLODIPINE BESYLATE
     Dosage: UNK
  12. PRILOSEC [Concomitant]
     Active Substance: OMEPRAZOLE MAGNESIUM
     Dosage: UNK
  13. CLOZAPINE TABLETS, USP [Suspect]
     Active Substance: CLOZAPINE
     Dosage: 100 MG, BID
     Route: 048
     Dates: start: 20160414, end: 20160610

REACTIONS (1)
  - Neutropenia [Recovering/Resolving]

NARRATIVE: CASE EVENT DATE: 20160607
